FAERS Safety Report 5839784-4 (Version None)
Quarter: 2008Q3

REPORT INFORMATION
  Report Type: 
  Country: None (occurrence: None)
  Receive Date: 20080807
  Receipt Date: 20080725
  Transmission Date: 20090109
  Serious: Yes (Hospitalization)
  Sender: FDA-Public Use
  Company Number: 2008AL008764

PATIENT
  Age: 85 Year
  Sex: Male

DRUGS (1)
  1. DIGOXIN [Suspect]
     Dosage: DAILY, PO
     Route: 048

REACTIONS (3)
  - HAEMOPTYSIS [None]
  - MALAISE [None]
  - PNEUMONIA [None]
